FAERS Safety Report 19721983 (Version 12)
Quarter: 2022Q3

REPORT INFORMATION
  Report Type: Report from Study
  Country: US (occurrence: US)
  Receive Date: 20210818
  Receipt Date: 20220715
  Transmission Date: 20221026
  Serious: No
  Sender: FDA-Public Use
  Company Number: NVSC2021US184654

PATIENT
  Sex: Female

DRUGS (3)
  1. ENTRESTO [Suspect]
     Active Substance: SACUBITRIL\VALSARTAN
     Indication: Product used for unknown indication
     Dosage: 1 DF, BID (24/26MG)
     Route: 048
  2. ENTRESTO [Suspect]
     Active Substance: SACUBITRIL\VALSARTAN
     Dosage: 1 DOSAGE FORM, BID (49/51 MGS)
     Route: 048
  3. COREG [Concomitant]
     Active Substance: CARVEDILOL
     Indication: Product used for unknown indication
     Dosage: UNK
     Route: 065

REACTIONS (13)
  - Amnesia [Unknown]
  - Pain [Unknown]
  - Back pain [Unknown]
  - Decreased appetite [Unknown]
  - Bone pain [Unknown]
  - Depression [Unknown]
  - Arthralgia [Unknown]
  - Increased appetite [Unknown]
  - Weight increased [Unknown]
  - Tearfulness [Unknown]
  - Dacryostenosis acquired [Unknown]
  - Dizziness [Unknown]
  - Blood pressure decreased [Unknown]
